FAERS Safety Report 5371109-3 (Version None)
Quarter: 2007Q2

REPORT INFORMATION
  Report Type: 
  Country: None (occurrence: None)
  Receive Date: 20070615
  Receipt Date: 20070403
  Transmission Date: 20071010
  Serious: Yes (Other)
  Sender: FDA-Public Use
  Company Number: 200712302US

PATIENT
  Age: 53 Year
  Sex: Female

DRUGS (22)
  1. LANTUS [Suspect]
     Indication: DIABETES MELLITUS INSULIN-DEPENDENT
     Dosage: 15 U AM+PM INJ
     Dates: start: 20030101, end: 20070328
  2. LANTUS [Suspect]
     Indication: DIABETES MELLITUS INSULIN-DEPENDENT
     Dosage: 15 U QPM INJ
     Dates: start: 20070328, end: 20070328
  3. LANTUS [Suspect]
     Indication: DIABETES MELLITUS INSULIN-DEPENDENT
     Dosage: 15 U AM+PM INJ
     Dates: start: 20070329
  4. OPTICLIK [Suspect]
     Indication: DIABETES MELLITUS INSULIN-DEPENDENT
  5. OPTICLIK [Suspect]
     Indication: DIABETES MELLITUS INSULIN-DEPENDENT
     Dates: start: 20070101
  6. PROGRAF [Concomitant]
  7. MYCOPHENOLATE MOFETIL (CELLCEPT) [Concomitant]
  8. PREDNISONE [Concomitant]
  9. PANTOPRAZOLE SODIUM [Concomitant]
  10. METOPROLOL SUCCINATE [Concomitant]
  11. ASPIRIN [Concomitant]
  12. IMDUR [Concomitant]
  13. TEGASEROD [Concomitant]
  14. SENNA ALEXANDRINA (SENOKOT) [Concomitant]
  15. CALCIUM CHLORIDE [Concomitant]
  16. SIMVASTATIN [Concomitant]
  17. LEVOTHYROXINE SODIUM (LEVOTHYROID) [Concomitant]
  18. MAGNESIUM SULFATE [Concomitant]
  19. ACTONEL [Concomitant]
  20. ISRADIPINE (DYNACIRC CR) [Concomitant]
  21. ZETIA [Concomitant]
  22. HUMALOG [Concomitant]

REACTIONS (5)
  - BLOOD GLUCOSE FLUCTUATION [None]
  - BLOOD GLUCOSE INCREASED [None]
  - FEELING ABNORMAL [None]
  - HYPOGLYCAEMIA [None]
  - OVERDOSE [None]
